FAERS Safety Report 7351003-9 (Version None)
Quarter: 2011Q1

REPORT INFORMATION
  Report Type: 
  Country: None (occurrence: None)
  Receive Date: 20110314
  Receipt Date: 20110301
  Transmission Date: 20110831
  Serious: Yes (Other)
  Sender: FDA-Public Use
  Company Number: PHHY2011GB16524

PATIENT
  Age: 76 Year
  Sex: Female

DRUGS (11)
  1. BISOPROLOL FUMARATE [Suspect]
     Dosage: 5 MG, QD
  2. DIGOXIN [Concomitant]
     Dosage: 250 UG, QD
  3. HYDROCORTISONE [Concomitant]
     Dosage: ONCE A DAY
  4. RAMIPRIL [Concomitant]
     Dosage: 10 MG, QD
  5. SITAGLIPTIN [Concomitant]
     Dosage: 100 MG, QD
  6. DILTIAZEM [Concomitant]
     Dosage: 90 MG, BID
  7. AMITRIPTYLINE HCL [Concomitant]
     Dosage: 50 MG, QD
  8. ISOSORBIDE MONONITRATE [Concomitant]
     Dosage: 30 MG, QD
  9. OMEPRAZOLE [Concomitant]
     Dosage: 20 MG, QD
  10. PREDNISOLONE [Concomitant]
     Dosage: 10 MG, QD
  11. ASPIRIN [Concomitant]
     Dosage: 75 MG, QD

REACTIONS (1)
  - EPISTAXIS [None]
